FAERS Safety Report 12882066 (Version 2)
Quarter: 2016Q4

REPORT INFORMATION
  Report Type: Report from Study
  Country: CA (occurrence: CA)
  Receive Date: 20161025
  Receipt Date: 20161208
  Transmission Date: 20170207
  Serious: Yes (Other)
  Sender: FDA-Public Use
  Company Number: CA-JNJFOC-20160823007

PATIENT
  Age: 72 Year
  Sex: Male

DRUGS (1)
  1. IMBRUVICA [Suspect]
     Active Substance: IBRUTINIB
     Indication: MANTLE CELL LYMPHOMA
     Route: 048
     Dates: start: 20160816

REACTIONS (11)
  - Increased tendency to bruise [Unknown]
  - Cough [Not Recovered/Not Resolved]
  - Nasopharyngitis [Not Recovered/Not Resolved]
  - Pharyngeal neoplasm [Recovered/Resolved]
  - Muscle spasms [Not Recovered/Not Resolved]
  - Platelet count decreased [Unknown]
  - Productive cough [Recovered/Resolved]
  - Fatigue [Recovering/Resolving]
  - Heart rate increased [Unknown]
  - Energy increased [Unknown]
  - Ear haemorrhage [Unknown]

NARRATIVE: CASE EVENT DATE: 2016
